FAERS Safety Report 8871821 (Version 1)
Quarter: 2012Q4

REPORT INFORMATION
  Report Type: 
  Country: US (occurrence: US)
  Receive Date: 20121023
  Receipt Date: 20121023
  Transmission Date: 20130627
  Serious: Yes (Other)
  Sender: FDA-Public Use
  Company Number: US-ASTELLAS-2012US007403

PATIENT
  Age: 58 Year
  Sex: Female

DRUGS (1)
  1. PROGRAF [Suspect]
     Indication: PRODUCT USED FOR UNKNOWN INDICATION
     Dosage: 3 mg AM, 2 mg PM
     Route: 065
     Dates: start: 20120222

REACTIONS (1)
  - Urticaria [Recovered/Resolved]
